FAERS Safety Report 8571079-0 (Version None)
Quarter: 2012Q3

REPORT INFORMATION
  Report Type: 
  Country: None (occurrence: None)
  Receive Date: 20120806
  Receipt Date: 20120803
  Transmission Date: 20120928
  Serious: No
  Sender: FDA-Public Use
  Company Number: US-PFIZER INC-2012189443

PATIENT
  Age: 37 Year
  Sex: Female
  Weight: 61.224 kg

DRUGS (2)
  1. SERTRALINE HYDROCHLORIDE [Suspect]
     Indication: DEPRESSION
  2. SERTRALINE HYDROCHLORIDE [Suspect]
     Indication: ANXIETY
     Dosage: 50 MG, DAILY
     Dates: start: 20100101, end: 20120401

REACTIONS (2)
  - DANDRUFF [None]
  - ALOPECIA [None]
